FAERS Safety Report 4445708-7 (Version None)
Quarter: 2004Q3

REPORT INFORMATION
  Report Type: 
  Country: None (occurrence: None)
  Receive Date: 20040908
  Receipt Date: 20040908
  Transmission Date: 20050211
  Serious: Yes (Other)
  Sender: FDA-Public Use
  Company Number: None

PATIENT
  Sex: Female
  Weight: 68.0396 kg

DRUGS (1)
  1. FLUVOXAMINE [Suspect]
     Indication: DEPRESSION
     Dosage: 25-50 MG ORAL
     Route: 048
     Dates: start: 20040827, end: 20040829

REACTIONS (3)
  - APPETITE DISORDER [None]
  - HUNGER [None]
  - INSOMNIA [None]
